FAERS Safety Report 13982548 (Version 1)
Quarter: 2017Q3

REPORT INFORMATION
  Report Type: Spontaneous
  Country: US (occurrence: US)
  Receive Date: 20170918
  Receipt Date: 20170918
  Transmission Date: 20171128
  Serious: No
  Sender: FDA-Public Use
  Company Number: US-LEADIANT BIOSCIENCES INC-2016STPI000570

PATIENT
  Age: 61 Year
  Sex: Female

DRUGS (4)
  1. LOMUSTINE. [Concomitant]
     Active Substance: LOMUSTINE
     Indication: OLIGODENDROGLIOMA
  2. MATULANE [Suspect]
     Active Substance: PROCARBAZINE HYDROCHLORIDE
     Indication: EAR NEOPLASM MALIGNANT
     Dosage: 50 MG, 2 CAPS ALTERNATING 3 CAPS, QD, FOR 14 DAYS ON DAYS 8-21 OF EACH CYCLE
     Route: 048
     Dates: start: 20160426
  3. VINCRISTINE [Concomitant]
     Active Substance: VINCRISTINE
     Indication: OLIGODENDROGLIOMA
  4. KEPPRA [Concomitant]
     Active Substance: LEVETIRACETAM
     Indication: PRODUCT USED FOR UNKNOWN INDICATION

REACTIONS (2)
  - Fatigue [Unknown]
  - Neutropenia [Recovered/Resolved]

NARRATIVE: CASE EVENT DATE: 201607
